FAERS Safety Report 10192765 (Version 1)
Quarter: 2014Q2

REPORT INFORMATION
  Report Type: Report from Study
  Country: CA (occurrence: CA)
  Receive Date: 20140523
  Receipt Date: 20140523
  Transmission Date: 20141212
  Serious: Yes (Other)
  Sender: FDA-Public Use
  Company Number: CA-ABBVIE-14P-028-1239772-00

PATIENT
  Sex: Male
  Weight: 104.42 kg

DRUGS (1)
  1. HUMIRA [Suspect]
     Indication: PSORIATIC ARTHROPATHY
     Route: 058
     Dates: start: 20090622, end: 20140411

REACTIONS (3)
  - Melanocytic naevus [Recovered/Resolved]
  - Soft tissue disorder [Recovering/Resolving]
  - Impaired healing [Unknown]
